FAERS Safety Report 4790384-7 (Version None)
Quarter: 2005Q4

REPORT INFORMATION
  Report Type: 
  Country: None (occurrence: None)
  Receive Date: 20051005
  Receipt Date: 20050926
  Transmission Date: 20060501
  Serious: Yes (Hospitalization)
  Sender: FDA-Public Use
  Company Number: TPA2005A01119

PATIENT
  Age: 78 Year
  Sex: Female
  Weight: 45.3597 kg

DRUGS (17)
  1. ACTOS [Suspect]
     Indication: DIABETES MELLITUS NON-INSULIN-DEPENDENT
     Dosage: 15 MG, 1 IN 1 D, PER ORAL
     Route: 048
  2. FUROSEMIDE [Suspect]
     Indication: OEDEMA
     Dosage: 40 MG, 1 IN 1 D, PER  ORAL
     Route: 048
     Dates: start: 20030101
  3. ASPIRIN [Concomitant]
  4. VITAMIN COMPLETE (VITAMINS NOS) [Concomitant]
  5. GLUCOSAMINE CHONDROITIN (GLUCOSAMINE W/CHONDROITIN) [Concomitant]
  6. ALLOPURINOL [Concomitant]
  7. NAPROXEN [Concomitant]
  8. MECLIZINE [Concomitant]
  9. DIGOXIN [Concomitant]
  10. ISOSORBIDE (ISOSORBIDE) [Concomitant]
  11. THYROID TAB [Concomitant]
  12. COZAAR [Concomitant]
  13. TOPROX XL (METOPROLOL SUCCINATE) [Concomitant]
  14. LIPITOR [Concomitant]
  15. ACIPHEX [Concomitant]
  16. FOSAMAX [Concomitant]
  17. AMBIEN [Concomitant]

REACTIONS (2)
  - STENT PLACEMENT [None]
  - WEIGHT DECREASED [None]
